FAERS Safety Report 17288591 (Version 1)
Quarter: 2020Q1

REPORT INFORMATION
  Report Type: Spontaneous
  Country: US (occurrence: US)
  Receive Date: 20200120
  Receipt Date: 20200120
  Transmission Date: 20200409
  Serious: Yes (Hospitalization)
  Sender: FDA-Public Use
  Company Number: US-NEOS THERAPEUTICS, LP-2020NEO00001

PATIENT
  Age: 24 Year
  Sex: Female

DRUGS (2)
  1. AMPHETAMINE [Suspect]
     Active Substance: AMPHETAMINE
     Route: 065
  2. INTRAVENOUS CONTRAST [Suspect]
     Active Substance: UNSPECIFIED INGREDIENT
     Indication: COMPUTERISED TOMOGRAM
     Route: 042

REACTIONS (3)
  - Cardiogenic shock [Recovering/Resolving]
  - Pulmonary arterial hypertension [Recovering/Resolving]
  - Hyperthyroidism [Recovering/Resolving]
